FAERS Safety Report 8096306-8 (Version None)
Quarter: 2012Q1

REPORT INFORMATION
  Report Type: 
  Country: None (occurrence: None)
  Receive Date: 20120129
  Receipt Date: 20111230
  Transmission Date: 20120608
  Serious: No
  Sender: FDA-Public Use
  Company Number: US-ABBOTT-12P-163-0888847-00

PATIENT
  Age: 74 Year
  Sex: Female

DRUGS (7)
  1. HUMIRA [Suspect]
     Indication: PSORIATIC ARTHROPATHY
     Dosage: LOADING DOSE
     Dates: start: 20111228
  2. CELEBREX [Concomitant]
     Indication: ARTHRITIS
  3. ASPIRIN [Concomitant]
     Indication: PRODUCT USED FOR UNKNOWN INDICATION
  4. BP MED(S) [Concomitant]
     Indication: HYPERTENSION
  5. ATIVAN [Concomitant]
     Indication: STRESS
     Dosage: 1 Q3-4 MONTHS
  6. VITAMIN D [Concomitant]
     Indication: VITAMIN SUPPLEMENTATION
  7. ATIVAN [Concomitant]
     Indication: DEATH OF RELATIVE

REACTIONS (1)
  - INJECTION SITE PAIN [None]
